FAERS Safety Report 15701036 (Version 1)
Quarter: 2018Q4

REPORT INFORMATION
  Report Type: Report from Study
  Country: US (occurrence: US)
  Receive Date: 20181207
  Receipt Date: 20181207
  Transmission Date: 20190205
  Serious: Yes (Death)
  Sender: FDA-Public Use
  Company Number: US-MYLANLABS-2018M1088983

PATIENT

DRUGS (7)
  1. METHOTREXATE. [Concomitant]
     Active Substance: METHOTREXATE
     Indication: PROPHYLAXIS
     Dosage: GIVEN ON DAYS 1, 3, 6 AND 11
     Route: 042
  2. BUSULFAN. [Suspect]
     Active Substance: BUSULFAN
     Dosage: FROM DAY -6 TO DAY -3 GIVEN OVER 3 H BY CONTROLLED RATE INFUSION PUMP
     Route: 042
  3. BUSULFAN. [Suspect]
     Active Substance: BUSULFAN
     Indication: BONE MARROW CONDITIONING REGIMEN
     Dosage: ON DAY -13 AND DAY -12 BEFORE HCT, RECEIVED FIRST DOSE
     Route: 042
  4. BUSULFAN. [Suspect]
     Active Substance: BUSULFAN
     Dosage: FINAL TWO DOSES ON DAY -4 AND DAY -3 TO MEET THE TARGET TOTAL AUC
     Route: 042
  5. FLUDARABINE [Suspect]
     Active Substance: FLUDARABINE PHOSPHATE
     Indication: BONE MARROW CONDITIONING REGIMEN
     Dosage: FROM DAY -6 TO DAY -3
     Route: 042
  6. PHENYTOIN. [Concomitant]
     Active Substance: PHENYTOIN
     Indication: SEIZURE
     Dosage: STARTED 1 DAY BEFORE THE FIRST DOSE OF BUSULFAN AND ENDED 1 DAY AFTER THE FINAL DOSE
     Route: 065
  7. TACROLIMUS. [Concomitant]
     Active Substance: TACROLIMUS
     Indication: PROPHYLAXIS
     Dosage: STARTED ON DAY -2, AIMING FOR A CONCENTRATION OF 8-11 NG/ML
     Route: 065

REACTIONS (1)
  - Idiopathic pneumonia syndrome [Fatal]
